FAERS Safety Report 13839589 (Version 1)
Quarter: 2017Q3

REPORT INFORMATION
  Report Type: Spontaneous
  Country: US (occurrence: US)
  Receive Date: 20170805
  Receipt Date: 20170805
  Transmission Date: 20171127
  Serious: No
  Sender: FDA-Public Use
  Company Number: None

PATIENT
  Age: 37 Year
  Sex: Female

DRUGS (26)
  1. CLONIDINE. [Concomitant]
     Active Substance: CLONIDINE
  2. FENTANYL. [Concomitant]
     Active Substance: FENTANYL
  3. LANSOPRAZOLE. [Concomitant]
     Active Substance: LANSOPRAZOLE
  4. LORAZAPAM [Concomitant]
     Active Substance: LORAZEPAM
  5. AMPHOTERICIN B LIPOSOMAL [Suspect]
     Active Substance: AMPHOTERICIN B
     Indication: INFECTION
     Route: 042
     Dates: start: 20170127, end: 20170224
  6. ENOXAPARIN [Concomitant]
     Active Substance: ENOXAPARIN
  7. HYDROMORPHONE [Concomitant]
     Active Substance: HYDROMORPHONE
  8. MYCOPHENOLATE [Concomitant]
     Active Substance: MYCOPHENOLIC ACID
  9. INSULIN ASPART [Concomitant]
     Active Substance: INSULIN ASPART
  10. VALGANCICLOVIR. [Concomitant]
     Active Substance: VALGANCICLOVIR
  11. CHOLECALCIFEROL [Concomitant]
     Active Substance: CHOLECALCIFEROL
  12. GABAPENTIN. [Concomitant]
     Active Substance: GABAPENTIN
  13. METOPROLOL SUCCINATE. [Concomitant]
     Active Substance: METOPROLOL SUCCINATE
  14. CHLORHEXADINE [Concomitant]
     Active Substance: CHLORHEXIDINE
  15. DOCUSATE [Concomitant]
     Active Substance: DOCUSATE
  16. QUETIAPINE. [Concomitant]
     Active Substance: QUETIAPINE
  17. SODIUM BICARBONATE. [Concomitant]
     Active Substance: SODIUM BICARBONATE
  18. ALBUTEROL. [Concomitant]
     Active Substance: ALBUTEROL
  19. ONDANSETRON [Concomitant]
     Active Substance: ONDANSETRON
  20. ACETAMINOPHEN. [Concomitant]
     Active Substance: ACETAMINOPHEN
  21. ESCITALOPRAM [Concomitant]
     Active Substance: ESCITALOPRAM OXALATE
  22. METOCLOPRAMIDE. [Concomitant]
     Active Substance: METOCLOPRAMIDE
  23. PREDNISONE. [Concomitant]
     Active Substance: PREDNISONE
  24. SULFAMETHOXAZOLE/TRIMETHOPRIM [Concomitant]
     Active Substance: SULFAMETHOXAZOLE\TRIMETHOPRIM
  25. CYCLOSPORINE. [Concomitant]
     Active Substance: CYCLOSPORINE
  26. SIMETHICONE (DIMETHICONE) [Concomitant]
     Active Substance: DIMETHICONE

REACTIONS (1)
  - Blood creatinine increased [None]

NARRATIVE: CASE EVENT DATE: 20170224
